FAERS Safety Report 7930617-9 (Version None)
Quarter: 2011Q4

REPORT INFORMATION
  Report Type: 
  Country: None (occurrence: None)
  Receive Date: 20111117
  Receipt Date: 20111107
  Transmission Date: 20120403
  Serious: Yes (Hospitalization)
  Sender: FDA-Public Use
  Company Number: 1100997

PATIENT
  Age: 53 Year
  Sex: Female
  Weight: 40.8237 kg

DRUGS (1)
  1. DOCETAXEL [Suspect]
     Indication: BREAST CANCER STAGE II
     Dosage: 21 DAY
     Dates: start: 20110216, end: 20110420

REACTIONS (2)
  - DIZZINESS [None]
  - NEUTROPENIA [None]
